FAERS Safety Report 15726176 (Version 1)
Quarter: 2018Q4

REPORT INFORMATION
  Report Type: Spontaneous
  Country: US (occurrence: US)
  Receive Date: 20181216
  Receipt Date: 20181216
  Transmission Date: 20190205
  Serious: No
  Sender: FDA-Public Use
  Company Number: US-SUPERNUS PHARMACEUTICALS, INC.-2018SUP00222

PATIENT
  Age: 63 Year
  Sex: Female
  Weight: 109.75 kg

DRUGS (15)
  1. TROKENDI XR [Suspect]
     Active Substance: TOPIRAMATE
     Indication: MENTAL DISORDER
     Dosage: 100 MG, 1X/DAY
     Route: 048
     Dates: start: 201806, end: 201806
  2. HUMALOG [Concomitant]
     Active Substance: INSULIN LISPRO
  3. OTHER UNSPECIFIED MEDICATIONS [Concomitant]
     Active Substance: UNSPECIFIED INGREDIENT
  4. MODAFINIL. [Concomitant]
     Active Substance: MODAFINIL
  5. ATORVASTATIN [Concomitant]
     Active Substance: ATORVASTATIN
  6. TROKENDI XR [Suspect]
     Active Substance: TOPIRAMATE
     Dosage: 50 MG, 2X/DAY (IN THE MORNING AND AT NIGHT)
     Route: 048
     Dates: start: 201807
  7. UNSPECIFIED INSULIN [Concomitant]
     Active Substance: INSULIN NOS
  8. ZIPRASIDONE. [Concomitant]
     Active Substance: ZIPRASIDONE
  9. VEGETABLE LAXATIVE [Concomitant]
     Active Substance: SENNOSIDES A AND B
  10. VALSARTAN. [Concomitant]
     Active Substance: VALSARTAN
     Dosage: IN THE MORNING
  11. LEVOTHYROXINE. [Concomitant]
     Active Substance: LEVOTHYROXINE
  12. METFORMIN [Concomitant]
     Active Substance: METFORMIN HYDROCHLORIDE
  13. TROKENDI XR [Suspect]
     Active Substance: TOPIRAMATE
     Indication: WEIGHT DECREASED
     Dosage: 50 MG, 1X/DAY
     Route: 048
     Dates: start: 201806, end: 201806
  14. TROKENDI XR [Suspect]
     Active Substance: TOPIRAMATE
     Indication: ANXIETY
     Dosage: 50 MG, 1X/DAY
     Route: 048
     Dates: start: 201806, end: 201807
  15. OMEGA 3 [Concomitant]
     Active Substance: OMEGA-3 FATTY ACIDS

REACTIONS (4)
  - Malaise [Not Recovered/Not Resolved]
  - Off label use [Not Recovered/Not Resolved]
  - Abdominal discomfort [Recovered/Resolved]
  - Diarrhoea [Recovered/Resolved]

NARRATIVE: CASE EVENT DATE: 201806
